FAERS Safety Report 7365240-0 (Version None)
Quarter: 2011Q1

REPORT INFORMATION
  Report Type: 
  Country: None (occurrence: None)
  Receive Date: 20110322
  Receipt Date: 20110314
  Transmission Date: 20110831
  Serious: Yes (Hospitalization)
  Sender: FDA-Public Use
  Company Number: US-BIOGENIDEC-2010BI037101

PATIENT
  Age: 43 Year
  Sex: Female
  Weight: 124 kg

DRUGS (10)
  1. ZOLOFT [Concomitant]
  2. CLONAZEPAM [Concomitant]
  3. STOOL SOFTENER [Concomitant]
  4. TYSABRI [Suspect]
     Indication: MULTIPLE SCLEROSIS
     Route: 042
     Dates: start: 20090421, end: 20100817
  5. ZANTAC [Concomitant]
  6. BACLOFEN [Concomitant]
  7. ATIVAN [Concomitant]
  8. VITAMIN D [Concomitant]
  9. OXYBUTYNIN [Concomitant]
  10. ALBUTEROL [Concomitant]
     Dosage: DOSE UNIT:90

REACTIONS (3)
  - ARTERIAL THROMBOSIS LIMB [None]
  - PULMONARY EMBOLISM [None]
  - CEREBROVASCULAR ACCIDENT [None]
